FAERS Safety Report 9722122 (Version 1)
Quarter: 2013Q4

REPORT INFORMATION
  Report Type: Spontaneous
  Country: US (occurrence: US)
  Receive Date: 20131202
  Receipt Date: 20131202
  Transmission Date: 20140711
  Serious: No
  Sender: FDA-Public Use
  Company Number: US-BIOGENIDEC-2013BI113636

PATIENT
  Sex: Male

DRUGS (4)
  1. AVONEX [Suspect]
     Indication: MULTIPLE SCLEROSIS
     Route: 030
     Dates: start: 20110311
  2. BACLOFEN [Concomitant]
  3. CLONAZEPAM [Concomitant]
  4. IBUPROFEN [Concomitant]

REACTIONS (2)
  - Muscle twitching [Unknown]
  - Asthenia [Unknown]
